FAERS Safety Report 23237572 (Version 2)
Quarter: 2024Q1

REPORT INFORMATION
  Report Type: Spontaneous
  Country: IL (occurrence: IL)
  Receive Date: 20231128
  Receipt Date: 20240116
  Transmission Date: 20240410
  Serious: Yes (Death, Life-Threatening, Hospitalization)
  Sender: FDA-Public Use
  Company Number: IL-Eisai-EC-2023-153716

PATIENT
  Age: 65 Year
  Sex: Female
  Weight: 68 kg

DRUGS (5)
  1. LENVIMA [Suspect]
     Active Substance: LENVATINIB
     Indication: Metastatic renal cell carcinoma
     Route: 048
     Dates: start: 20230920, end: 202310
  2. LENVIMA [Suspect]
     Active Substance: LENVATINIB
     Route: 048
     Dates: start: 202310, end: 20231011
  3. KEYTRUDA [Suspect]
     Active Substance: PEMBROLIZUMAB
     Indication: Metastatic renal cell carcinoma
     Dosage: FREQUENCY UNKNOWN.
     Route: 042
     Dates: start: 20231002, end: 20231002
  4. ATORVASTATIN [Concomitant]
     Active Substance: ATORVASTATIN
     Indication: Hyperlipidaemia
     Dosage: DOSE AND FREQUENCY UNKNOWN.
     Route: 065
  5. METFORMIN HYDROCHLORIDE\SITAGLIPTIN PHOSPHATE [Concomitant]
     Active Substance: METFORMIN HYDROCHLORIDE\SITAGLIPTIN PHOSPHATE
     Indication: Diabetes mellitus
     Dosage: DOSE AND FREQUENCY UNKNOWN.
     Route: 065

REACTIONS (5)
  - Reversible cerebral vasoconstriction syndrome [Fatal]
  - Vomiting [Unknown]
  - Diarrhoea [Unknown]
  - Urinary incontinence [Unknown]
  - Blood thyroid stimulating hormone increased [Unknown]

NARRATIVE: CASE EVENT DATE: 20230101
